FAERS Safety Report 12097727 (Version 1)
Quarter: 2016Q1

REPORT INFORMATION
  Report Type: Other
  Country: US (occurrence: US)
  Receive Date: 20160221
  Receipt Date: 20160221
  Transmission Date: 20160526
  Serious: No
  Sender: FDA-Public Use
  Company Number: US-ACORDA-ACO_111507_2015

PATIENT
  Sex: Female

DRUGS (1)
  1. AMPYRA [Suspect]
     Active Substance: DALFAMPRIDINE
     Indication: PRODUCT USED FOR UNKNOWN INDICATION
     Dosage: 10 MG, Q 12 HRS
     Route: 048
     Dates: start: 20150430, end: 20150504

REACTIONS (6)
  - Tremor [Unknown]
  - Balance disorder [Unknown]
  - Malaise [Unknown]
  - Nausea [Unknown]
  - Dizziness [Unknown]
  - Headache [Unknown]
